FAERS Safety Report 23300538 (Version 1)
Quarter: 2023Q4

REPORT INFORMATION
  Report Type: Spontaneous
  Country: US (occurrence: US)
  Receive Date: 20231215
  Receipt Date: 20231215
  Transmission Date: 20240110
  Serious: No
  Sender: FDA-Public Use
  Company Number: US-ELI_LILLY_AND_COMPANY-US202312006361

PATIENT
  Age: 64 Year
  Sex: Female

DRUGS (2)
  1. OLUMIANT [Suspect]
     Active Substance: BARICITINIB
     Indication: Alopecia
     Dosage: 4 MG, UNKNOWN
     Route: 065
     Dates: start: 202212
  2. OLUMIANT [Suspect]
     Active Substance: BARICITINIB
     Dosage: 4 MG, UNKNOWN
     Route: 065

REACTIONS (7)
  - COVID-19 [Unknown]
  - Fungal infection [Unknown]
  - Weight increased [Unknown]
  - Headache [Unknown]
  - Blood cholesterol increased [Unknown]
  - Laryngitis [Unknown]
  - Nasopharyngitis [Unknown]
